FAERS Safety Report 15190377 (Version 1)
Quarter: 2018Q3

REPORT INFORMATION
  Report Type: Spontaneous
  Country: FR (occurrence: FR)
  Receive Date: 20180724
  Receipt Date: 20180724
  Transmission Date: 20181010
  Serious: Yes (Hospitalization)
  Sender: FDA-Public Use
  Company Number: FR-GUERBET-FR-20180417

PATIENT
  Age: 88 Year
  Sex: Female
  Weight: 79.8 kg

DRUGS (2)
  1. OPTIJECT 350 [Suspect]
     Active Substance: IOVERSOL
     Indication: COMPUTERISED TOMOGRAM ABDOMEN
     Route: 041
     Dates: start: 20180614, end: 20180614
  2. TELEBRIX GASTRO [Suspect]
     Active Substance: MEGLUMINE IOXITHALAMATE
     Indication: COMPUTERISED TOMOGRAM ABDOMEN
     Route: 048
     Dates: start: 20180614, end: 20180614

REACTIONS (3)
  - Rash [Recovering/Resolving]
  - Acute kidney injury [Recovering/Resolving]
  - Pruritus [Recovering/Resolving]

NARRATIVE: CASE EVENT DATE: 20180614
